FAERS Safety Report 9832020 (Version 3)
Quarter: 2014Q1

REPORT INFORMATION
  Report Type: Spontaneous
  Country: JP (occurrence: JP)
  Receive Date: 20140121
  Receipt Date: 20140227
  Transmission Date: 20141002
  Serious: Yes (Other)
  Sender: FDA-Public Use
  Company Number: PHHY2014JP006587

PATIENT
  Age: 72 Year
  Sex: Male

DRUGS (1)
  1. VOLTAREN [Suspect]
     Indication: CANCER PAIN
     Dosage: 1 DF, TID
     Route: 048
     Dates: start: 20130403, end: 20131227

REACTIONS (1)
  - Metastases to bone [Unknown]
